FAERS Safety Report 6184785-2 (Version None)
Quarter: 2009Q2

REPORT INFORMATION
  Report Type: 
  Country: None (occurrence: None)
  Receive Date: 20090508
  Receipt Date: 20090505
  Transmission Date: 20091009
  Serious: Yes (Death, Hospitalization, Other)
  Sender: FDA-Public Use
  Company Number: ES-WYE-G02572508

PATIENT
  Age: 60 Year
  Sex: Male

DRUGS (1)
  1. TEMSIROLIMUS [Suspect]
     Indication: RENAL CANCER METASTATIC
     Route: 042
     Dates: start: 20080801, end: 20081001

REACTIONS (3)
  - DISEASE PROGRESSION [None]
  - PULMONARY EMBOLISM [None]
  - RESPIRATORY FAILURE [None]
